FAERS Safety Report 9753424 (Version 1)
Quarter: 2013Q4

REPORT INFORMATION
  Report Type: Spontaneous
  Country: US (occurrence: US)
  Receive Date: 20131213
  Receipt Date: 20131213
  Transmission Date: 20140711
  Serious: No
  Sender: FDA-Public Use
  Company Number: US-TEVA-403907USA

PATIENT
  Sex: Female
  Weight: 76.27 kg

DRUGS (8)
  1. PARAGARD 380A [Suspect]
     Indication: CONTRACEPTION
     Route: 015
     Dates: start: 20130426
  2. ALLEGRA [Concomitant]
     Indication: HYPERSENSITIVITY
  3. FOLIC ACID [Concomitant]
     Indication: NUTRITIONAL SUPPLEMENTATION
  4. PRENATAL VITAMINS [Concomitant]
     Indication: NUTRITIONAL SUPPLEMENTATION
  5. XYZAL [Concomitant]
  6. SINGULAIR [Concomitant]
     Indication: HYPERSENSITIVITY
  7. TOPROL XL [Concomitant]
  8. DEXILANT [Concomitant]

REACTIONS (2)
  - Medical device complication [Not Recovered/Not Resolved]
  - Pelvic pain [Not Recovered/Not Resolved]
